FAERS Safety Report 5754754-2 (Version None)
Quarter: 2008Q2

REPORT INFORMATION
  Report Type: 
  Country: None (occurrence: None)
  Receive Date: 20080530
  Receipt Date: 20080521
  Transmission Date: 20081010
  Serious: Yes (Hospitalization)
  Sender: FDA-Public Use
  Company Number: FR-PFIZER INC-2008045180

PATIENT
  Sex: Male

DRUGS (2)
  1. VIRACEPT [Suspect]
     Route: 064
  2. COMBIVIR [Suspect]
     Route: 064

REACTIONS (2)
  - DRUG EXPOSURE DURING PREGNANCY [None]
  - VITH NERVE PARALYSIS [None]
